FAERS Safety Report 6932037-2 (Version None)
Quarter: 2010Q3

REPORT INFORMATION
  Report Type: 
  Country: None (occurrence: None)
  Receive Date: 20100812
  Receipt Date: 20080304
  Transmission Date: 20110219
  Serious: No
  Sender: FDA-Public Use
  Company Number: 2008-00055

PATIENT
  Age: 57 Year
  Sex: Female
  Weight: 131.5431 kg

DRUGS (5)
  1. ZICAM COLD REMEDY GEL SWABS [Suspect]
     Dosage: QID; MID DEC-2007
  2. METOPROLOL TARTRATE [Concomitant]
  3. POTASSIUM [Concomitant]
  4. LASIX [Concomitant]
  5. SYNTHROID [Concomitant]

REACTIONS (1)
  - ANOSMIA [None]
